FAERS Safety Report 16522750 (Version 1)
Quarter: 2019Q3

REPORT INFORMATION
  Report Type: Other
  Country: GB (occurrence: GB)
  Receive Date: 20190703
  Receipt Date: 20190703
  Transmission Date: 20191004
  Serious: No
  Sender: FDA-Public Use
  Company Number: GB-LUPIN PHARMACEUTICALS INC.-2018-07933

PATIENT
  Age: 79 Year
  Sex: Female
  Weight: 84 kg

DRUGS (10)
  1. PRO D3 [Concomitant]
     Active Substance: CHOLECALCIFEROL
     Indication: ILL-DEFINED DISORDER
     Dosage: TAKE ONE DAILY AS DIRECTED
     Route: 065
     Dates: start: 20180406
  2. BENDROFLUMETHIAZIDE [Concomitant]
     Active Substance: BENDROFLUMETHIAZIDE
     Indication: ILL-DEFINED DISORDER
     Dosage: TAKE ONE EACH MORNING
     Route: 065
     Dates: start: 20180706, end: 20180803
  3. LATANOPROST. [Concomitant]
     Active Substance: LATANOPROST
     Indication: ILL-DEFINED DISORDER
     Dosage: 1 DROP AT NIGHT TO RIGHT EYE
     Route: 065
     Dates: start: 20180406, end: 20180927
  4. COCODAMOL [Concomitant]
     Active Substance: ACETAMINOPHEN\CODEINE PHOSPHATE
     Indication: ILL-DEFINED DISORDER
     Dosage: 1-2 UPTO FOUR TIMES A DAY WHEN REQUIRED FOR FOR... ()
     Route: 065
     Dates: start: 20180514
  5. TIMOLOL. [Concomitant]
     Active Substance: TIMOLOL
     Indication: ILL-DEFINED DISORDER
     Dosage: ONE DROP ONCE DAILY RIGHT EYE
     Route: 065
     Dates: start: 20180927
  6. ALLOPURINOL. [Concomitant]
     Active Substance: ALLOPURINOL
     Indication: ILL-DEFINED DISORDER
     Dosage: 1 EVERY MORNING TO PREVENT GOUT
     Route: 065
     Dates: start: 20180406
  7. BISOPROLOL [Concomitant]
     Active Substance: BISOPROLOL
     Indication: ILL-DEFINED DISORDER
     Dosage: TAKE ONE IN THE MORNING
     Route: 065
     Dates: start: 20180428
  8. LACRI-LUBE [Concomitant]
     Indication: ILL-DEFINED DISORDER
     Dosage: APPLY AS NEEDED
     Route: 065
     Dates: start: 20171128
  9. CANDESARTAN. [Concomitant]
     Active Substance: CANDESARTAN
     Indication: ILL-DEFINED DISORDER
     Dosage: TAKE ONE DAILY TO LOWER BLOOD PRESSURE AND TO P...
     Route: 065
     Dates: start: 20180706
  10. SIMVASTATIN. [Suspect]
     Active Substance: SIMVASTATIN
     Indication: ILL-DEFINED DISORDER
     Dosage: UNK
     Route: 065
     Dates: start: 20181022

REACTIONS (1)
  - Skin reaction [Recovered/Resolved]

NARRATIVE: CASE EVENT DATE: 20181022
